FAERS Safety Report 10943887 (Version 2)
Quarter: 2015Q1

REPORT INFORMATION
  Report Type: Spontaneous
  Country: NL (occurrence: NL)
  Receive Date: 20150322
  Receipt Date: 20150323
  Transmission Date: 20150721
  Serious: Yes (Other)
  Sender: FDA-Public Use
  Company Number: NL-UCBSA-2015009193

PATIENT
  Age: 11 Year
  Sex: Male
  Weight: 46 kg

DRUGS (1)
  1. METHYLPHENIDATE HYDROCHLORIDE. [Suspect]
     Active Substance: METHYLPHENIDATE HYDROCHLORIDE
     Indication: ATTENTION DEFICIT/HYPERACTIVITY DISORDER
     Dosage: 40 MG (TWO 20 MG CAPSULES), ONCE DAILY (QD)
     Route: 048
     Dates: start: 20110204, end: 20140127

REACTIONS (1)
  - Gynaecomastia [Recovering/Resolving]

NARRATIVE: CASE EVENT DATE: 201109
